FAERS Safety Report 6018448-0 (Version None)
Quarter: 2008Q4

REPORT INFORMATION
  Report Type: 
  Country: None (occurrence: None)
  Receive Date: 20081223
  Receipt Date: 20081216
  Transmission Date: 20090506
  Serious: Yes (Other)
  Sender: FDA-Public Use
  Company Number: US-JNJCH-2008057703

PATIENT
  Age: 26 Year
  Sex: Female
  Weight: 52.2 kg

DRUGS (1)
  1. DRAMAMINE [Suspect]
     Indication: MOTION SICKNESS
     Dosage: TEXT:1 PILL UNSPECIFIED
     Route: 048

REACTIONS (2)
  - HYPERSENSITIVITY [None]
  - THROAT TIGHTNESS [None]
